FAERS Safety Report 9562142 (Version 2)
Quarter: 2013Q3

REPORT INFORMATION
  Report Type: Spontaneous
  Country: FR (occurrence: FR)
  Receive Date: 20130927
  Receipt Date: 20130927
  Transmission Date: 20140515
  Serious: Yes (Hospitalization)
  Sender: FDA-Public Use
  Company Number: FR-TEVA-432516USA

PATIENT
  Age: 83 Year
  Sex: Female

DRUGS (14)
  1. LEVACT [Suspect]
     Indication: B-CELL LYMPHOMA
     Dosage: TWICE A MONTH
     Route: 042
     Dates: start: 20130703
  2. LEVACT [Suspect]
     Indication: NON-HODGKIN^S LYMPHOMA
     Dosage: TWICE A MONTH
     Route: 042
     Dates: start: 20130731, end: 20130801
  3. METHYLPREDNISOLONE [Suspect]
     Indication: B-CELL LYMPHOMA
     Dosage: UNKNOWN/D
     Dates: start: 201307
  4. METHYLPREDNISOLONE [Suspect]
     Indication: NON-HODGKIN^S LYMPHOMA
  5. BACTRIM [Suspect]
     Indication: PRODUCT USED FOR UNKNOWN INDICATION
     Dosage: THREE TIMES A WEEK
     Route: 048
     Dates: start: 20130704, end: 20130819
  6. RITUXIMAB [Suspect]
     Indication: B-CELL LYMPHOMA
     Route: 042
     Dates: start: 20130703
  7. RITUXIMAB [Suspect]
     Indication: NON-HODGKIN^S LYMPHOMA
     Route: 042
     Dates: start: 20130731
  8. MOTILIUM [Suspect]
     Indication: PRODUCT USED FOR UNKNOWN INDICATION
     Dosage: 2 DOSAGE FORMS DAILY;
     Dates: start: 20130814, end: 20130815
  9. CIFLOX [Suspect]
     Indication: PYREXIA
     Dosage: UID/QD
     Route: 048
     Dates: start: 20130818, end: 20130819
  10. ZINNAT [Suspect]
     Indication: PYREXIA
     Dosage: UNKNOWN/D
     Dates: start: 20130818
  11. TAGAMET [Concomitant]
     Indication: PRODUCT USED FOR UNKNOWN INDICATION
  12. ATARAX [Concomitant]
     Indication: PRODUCT USED FOR UNKNOWN INDICATION
  13. LASILIX [Concomitant]
     Dates: start: 20130801
  14. AERIUS [Concomitant]
     Indication: FACE OEDEMA
     Dates: start: 20130802

REACTIONS (1)
  - Toxic skin eruption [Recovered/Resolved]
